FAERS Safety Report 9669337 (Version 3)
Quarter: 2017Q3

REPORT INFORMATION
  Report Type: Spontaneous
  Country: IT (occurrence: IT)
  Receive Date: 20131105
  Receipt Date: 20170817
  Transmission Date: 20171128
  Serious: Yes (Death, Other)
  Sender: FDA-Public Use
  Company Number: IT-TEVA-440236ISR

PATIENT
  Age: 40 Year
  Sex: Male

DRUGS (2)
  1. QUETIAPINE. [Suspect]
     Active Substance: QUETIAPINE
     Indication: PSYCHOTIC DISORDER
     Dosage: 700 MILLIGRAM DAILY; 200MG X 2 + 300MG IN THE EVENING
     Route: 065
  2. CLOZAPINE. [Suspect]
     Active Substance: CLOZAPINE
     Indication: PSYCHOTIC DISORDER
     Dosage: 15 GTT DAILY; 100MG/ML, 15 DROPS IN THE EVENING. FORM: DROPS
     Route: 065

REACTIONS (2)
  - Conduction disorder [Fatal]
  - Ileus paralytic [Not Recovered/Not Resolved]
